FAERS Safety Report 8158997-2 (Version None)
Quarter: 2012Q1

REPORT INFORMATION
  Report Type: 
  Country: None (occurrence: None)
  Receive Date: 20120217
  Receipt Date: 20120203
  Transmission Date: 20120608
  Serious: Yes (Life-Threatening)
  Sender: FDA-Public Use
  Company Number: 1155578

PATIENT
  Age: 74 Year
  Sex: Female
  Weight: 60.6 kg

DRUGS (6)
  1. OXALIPLATIN [Suspect]
     Indication: COLORECTAL CANCER STAGE III
     Dosage: 1ST CYCLE: 130 MG/M^2 (215 MG), INTRAVENOUS DRIP
     Route: 041
     Dates: start: 20111221, end: 20111221
  2. DEXAMETHASONE [Concomitant]
  3. ONDANSETRON [Concomitant]
  4. (GLUOCOSE) [Concomitant]
  5. CAPECITABINE [Concomitant]
  6. (ANTIEMETICS AND ANTINAUSEANTS) [Concomitant]

REACTIONS (6)
  - THROAT TIGHTNESS [None]
  - PARAESTHESIA [None]
  - LOCAL SWELLING [None]
  - OEDEMA MOUTH [None]
  - DYSPNOEA [None]
  - DYSPHONIA [None]
